FAERS Safety Report 24097203 (Version 1)
Quarter: 2024Q3

REPORT INFORMATION
  Report Type: Spontaneous
  Country: TW (occurrence: TW)
  Receive Date: 20240716
  Receipt Date: 20240716
  Transmission Date: 20241017
  Serious: Yes (Other)
  Sender: DAIICHI
  Company Number: TW-DSJP-DSJ-2024-135362

PATIENT
  Age: 9 Decade
  Sex: Male
  Weight: 58 kg

DRUGS (5)
  1. EDOXABAN [Suspect]
     Active Substance: EDOXABAN
     Indication: Atrial fibrillation
     Dosage: 30 MG, QD
     Route: 048
  2. LIVALO [Concomitant]
     Active Substance: PITAVASTATIN CALCIUM
     Indication: Product used for unknown indication
     Dosage: 1 DF, QD
     Route: 065
  3. BISOPROLOL FUMARATE [Concomitant]
     Active Substance: BISOPROLOL FUMARATE
     Indication: Product used for unknown indication
     Dosage: 1 DF, QD
     Route: 065
  4. COXINE [Concomitant]
     Indication: Product used for unknown indication
     Dosage: 0.5 DF, BID
     Route: 048
  5. ACTEIN [Concomitant]
     Indication: Product used for unknown indication
     Dosage: 1 DF, QD (QN)
     Route: 065

REACTIONS (1)
  - Prostate cancer [Unknown]
